FAERS Safety Report 18584815 (Version 1)
Quarter: 2020Q4

REPORT INFORMATION
  Report Type: Spontaneous
  Country: US (occurrence: US)
  Receive Date: 20201203
  Receipt Date: 20201203
  Transmission Date: 20210114
  Serious: Yes (Death, Hospitalization)
  Sender: FDA-Public Use
  Company Number: None

PATIENT
  Age: 61 Year
  Sex: Female
  Weight: 62.4 kg

DRUGS (1)
  1. ASPIRIN. [Suspect]
     Active Substance: ASPIRIN
     Dates: end: 20190113

REACTIONS (7)
  - Liver function test decreased [None]
  - Memory impairment [None]
  - Malignant transformation [None]
  - Drug ineffective [None]
  - Second primary malignancy [None]
  - Quality of life decreased [None]
  - Confusional state [None]

NARRATIVE: CASE EVENT DATE: 20201105
